FAERS Safety Report 6010103-6 (Version None)
Quarter: 2008Q4

REPORT INFORMATION
  Report Type: 
  Country: None (occurrence: None)
  Receive Date: 20081218
  Receipt Date: 20081210
  Transmission Date: 20090506
  Serious: Yes (Hospitalization)
  Sender: FDA-Public Use
  Company Number: FR-BAXTER-2008BH013729

PATIENT
  Age: 72 Year
  Sex: Male

DRUGS (3)
  1. ENDOXAN BAXTER [Suspect]
     Indication: BRONCHIAL CARCINOMA
     Route: 042
     Dates: start: 20081016, end: 20081016
  2. DOXORUBICIN HCL [Suspect]
     Indication: BRONCHIAL CARCINOMA
     Route: 042
     Dates: start: 20081016, end: 20081016
  3. ETOPOSIDE [Suspect]
     Indication: BRONCHIAL CARCINOMA
     Route: 042
     Dates: start: 20081016, end: 20081016

REACTIONS (2)
  - LEUKOPENIA [None]
  - SEPSIS [None]
